FAERS Safety Report 7114926-1 (Version None)
Quarter: 2010Q4

REPORT INFORMATION
  Report Type: 
  Country: None (occurrence: None)
  Receive Date: 20101122
  Receipt Date: 20101111
  Transmission Date: 20110411
  Serious: No
  Sender: FDA-Public Use
  Company Number: US-BIOGENIDEC-2010BI040211

PATIENT
  Sex: Female

DRUGS (2)
  1. TYSABRI [Suspect]
     Indication: MULTIPLE SCLEROSIS
     Route: 042
     Dates: end: 20091218
  2. TYSABRI [Suspect]
     Route: 042
     Dates: start: 20101018

REACTIONS (4)
  - ASTHENIA [None]
  - BALANCE DISORDER [None]
  - EXERCISE TOLERANCE DECREASED [None]
  - FATIGUE [None]
